FAERS Safety Report 9670540 (Version 4)
Quarter: 2017Q3

REPORT INFORMATION
  Report Type: Report from Study
  Country: RU (occurrence: RU)
  Receive Date: 20131106
  Receipt Date: 20170918
  Transmission Date: 20171128
  Serious: Yes (Other)
  Sender: FDA-Public Use
  Company Number: RU-ROCHE-1299568

PATIENT

DRUGS (1)
  1. TOCILIZUMAB. [Suspect]
     Active Substance: TOCILIZUMAB
     Indication: STILL^S DISEASE
     Dosage: DOSE: 12MG/KG IN CHILDREN WITH WEIGHT LESS THAN 30KG, 8 MG/KG IN CHILDREN WITH WEIGHT 30 KGS.
     Route: 042

REACTIONS (2)
  - Histiocytosis haematophagic [Recovered/Resolved]
  - Infusion related reaction [Recovered/Resolved]
